FAERS Safety Report 6740575-0 (Version None)
Quarter: 2010Q2

REPORT INFORMATION
  Report Type: 
  Country: None (occurrence: None)
  Receive Date: 20100521
  Receipt Date: 20100505
  Transmission Date: 20101027
  Serious: Yes (Hospitalization)
  Sender: FDA-Public Use
  Company Number: 2010AL002786

PATIENT
  Age: 68 Year
  Sex: Male

DRUGS (3)
  1. RAMIPRIL CAPSULES,             (AELLC) (RAMIPRIL CAPSULES, (AELLC)) [Suspect]
     Indication: HYPERTENSION
     Dosage: 5 MG;QD;PO
     Route: 048
     Dates: start: 20090101
  2. AMLODIPINE [Concomitant]
  3. COLCHYSAT [Concomitant]

REACTIONS (10)
  - ARTHROPATHY [None]
  - DERMATOMYOSITIS [None]
  - DRUG INEFFECTIVE [None]
  - ERYTHEMA [None]
  - GASTRITIS [None]
  - MUSCULAR WEAKNESS [None]
  - MYALGIA [None]
  - MYOSITIS [None]
  - OESOPHAGEAL CANDIDIASIS [None]
  - PERIORBITAL OEDEMA [None]
